FAERS Safety Report 10379320 (Version 1)
Quarter: 2014Q3

REPORT INFORMATION
  Report Type: Spontaneous
  Country: US (occurrence: None)
  Receive Date: 20140811
  Receipt Date: 20140811
  Transmission Date: 20150326
  Serious: Yes (Disabling)
  Sender: FDA-Public Use
  Company Number: None

PATIENT
  Age: 30 Year
  Sex: Female
  Weight: 114.31 kg

DRUGS (2)
  1. DULOXETINE HCL 60 MG SUN PHARMA GLOB [Suspect]
     Active Substance: DULOXETINE HYDROCHLORIDE
     Indication: DEPRESSION
     Dosage: 2 PILLS ONCE DAILY  TAKEN BY MOUTH
     Route: 048
     Dates: start: 20140308, end: 20140808
  2. DULOXETINE HCL 60 MG SUN PHARMA GLOB [Suspect]
     Active Substance: DULOXETINE HYDROCHLORIDE
     Indication: NEURALGIA
     Dosage: 2 PILLS ONCE DAILY  TAKEN BY MOUTH
     Route: 048
     Dates: start: 20140308, end: 20140808

REACTIONS (11)
  - Depression [None]
  - Somnolence [None]
  - Product quality issue [None]
  - Cognitive disorder [None]
  - Memory impairment [None]
  - Disturbance in attention [None]
  - Pain [None]
  - Tremor [None]
  - Headache [None]
  - Constipation [None]
  - Product substitution issue [None]

NARRATIVE: CASE EVENT DATE: 20140808
